FAERS Safety Report 23357057 (Version 1)
Quarter: 2024Q1

REPORT INFORMATION
  Report Type: Spontaneous
  Country: CN (occurrence: CN)
  Receive Date: 20240102
  Receipt Date: 20240102
  Transmission Date: 20240410
  Serious: Yes (Life-Threatening)
  Sender: FDA-Public Use
  Company Number: CN-Merck Healthcare KGaA-2023496959

PATIENT
  Age: 70 Year
  Sex: Male
  Weight: 50 kg

DRUGS (6)
  1. ERBITUX [Suspect]
     Active Substance: CETUXIMAB
     Indication: Rectal cancer
     Dosage: 600 MG, 2/M (ONCE IN 2 WEEKS)
     Route: 041
     Dates: start: 20231109, end: 20231209
  2. IRINOTECAN HYDROCHLORIDE [Suspect]
     Active Substance: IRINOTECAN HYDROCHLORIDE
     Indication: Rectal cancer
     Dosage: 240 MG, 2/M (ONCE IN 2 WEEK)
     Route: 041
     Dates: start: 20231109, end: 20231209
  3. LEUCOVORIN CALCIUM [Suspect]
     Active Substance: LEUCOVORIN CALCIUM
     Indication: Rectal cancer
     Dosage: 0.5 G, 2/M (ONCE IN 2 WEEK)
     Route: 041
     Dates: start: 20231109, end: 20231222
  4. FLUOROURACIL [Suspect]
     Active Substance: FLUOROURACIL
     Indication: Rectal cancer
     Dosage: 3 G, 2/M (ONCE IN 2 WEEK)
     Route: 041
     Dates: start: 20231109, end: 20231222
  5. SODIUM CHLORIDE [Concomitant]
     Active Substance: SODIUM CHLORIDE
     Indication: Medication dilution
     Dosage: 250 ML, 2/M (ONCE IN 2 WEEK)
     Route: 041
     Dates: start: 20231109, end: 20231222
  6. SODIUM CHLORIDE [Concomitant]
     Active Substance: SODIUM CHLORIDE
     Dosage: 100.000 ML, 2/M (ONCE IN 2 WEEK)
     Route: 041
     Dates: start: 20231109, end: 20231222

REACTIONS (1)
  - White blood cell count decreased [Recovering/Resolving]

NARRATIVE: CASE EVENT DATE: 20231225
